FAERS Safety Report 5318751-3 (Version None)
Quarter: 2007Q2

REPORT INFORMATION
  Report Type: 
  Country: None (occurrence: None)
  Receive Date: 20070503
  Receipt Date: 20070503
  Transmission Date: 20071010
  Serious: Yes (Other)
  Sender: FDA-Public Use
  Company Number: None

PATIENT
  Sex: Male
  Weight: 78.0187 kg

DRUGS (1)
  1. LYRICA [Suspect]
     Indication: INTERVERTEBRAL DISC DEGENERATION
     Dosage: 75MG QID PO
     Route: 048
     Dates: start: 20060201, end: 20061001

REACTIONS (3)
  - ARTHRALGIA [None]
  - EOSINOPHILIA [None]
  - OEDEMA [None]
